FAERS Safety Report 12720446 (Version 1)
Quarter: 2016Q3

REPORT INFORMATION
  Report Type: Spontaneous
  Country: US (occurrence: US)
  Receive Date: 20160907
  Receipt Date: 20160907
  Transmission Date: 20161109
  Serious: No
  Sender: FDA-Public Use
  Company Number: US-009507513-1608USA006730

PATIENT
  Age: 18 Year
  Sex: Female
  Weight: 65.76 kg

DRUGS (1)
  1. NEXPLANON [Suspect]
     Active Substance: ETONOGESTREL
     Indication: CONTRACEPTION
     Dosage: UNK
     Route: 059
     Dates: start: 20160608, end: 20160808

REACTIONS (8)
  - Menstruation irregular [Unknown]
  - Device expulsion [Recovered/Resolved]
  - Amenorrhoea [Unknown]
  - Implant site infection [Recovering/Resolving]
  - Implant site erythema [Recovering/Resolving]
  - Implant site irritation [Recovering/Resolving]
  - Implant site pain [Recovering/Resolving]
  - Implant site pustules [Recovering/Resolving]

NARRATIVE: CASE EVENT DATE: 2016
